FAERS Safety Report 23178664 (Version 1)
Quarter: 2023Q4

REPORT INFORMATION
  Report Type: Report from Study
  Country: CN (occurrence: None)
  Receive Date: 20231113
  Receipt Date: 20231113
  Transmission Date: 20240110
  Serious: Yes (Hospitalization, Other)
  Sender: FDA-Public Use
  Company Number: 2023A257959

PATIENT
  Age: 926 Month
  Sex: Male
  Weight: 65.5 kg

DRUGS (4)
  1. DURVALUMAB [Suspect]
     Active Substance: DURVALUMAB
     Indication: Non-small cell lung cancer
     Route: 042
     Dates: start: 20230614, end: 20230712
  2. SAVOLITINIB [Suspect]
     Active Substance: SAVOLITINIB
     Indication: Non-small cell lung cancer
     Route: 048
     Dates: start: 20230614, end: 20230814
  3. LEUCOGEN TABLET [Concomitant]
     Route: 048
     Dates: start: 20230713
  4. BATILOL TABLET [Concomitant]
     Route: 048
     Dates: start: 20230713

REACTIONS (1)
  - Drug-induced liver injury [Recovered/Resolved]

NARRATIVE: CASE EVENT DATE: 20230819
